FAERS Safety Report 10205562 (Version 1)
Quarter: 2014Q2

REPORT INFORMATION
  Report Type: Spontaneous
  Country: DK (occurrence: FR)
  Receive Date: 20140529
  Receipt Date: 20140529
  Transmission Date: 20141212
  Serious: Yes (Hospitalization)
  Sender: FDA-Public Use
  Company Number: FR-FRI-1000067658

PATIENT
  Age: 61 Year
  Sex: Male

DRUGS (17)
  1. ESCITALOPRAM [Suspect]
     Dosage: 15 MG
     Route: 048
     Dates: start: 20140102, end: 20140104
  2. ESCITALOPRAM [Suspect]
     Dosage: 20 MG
     Route: 048
     Dates: start: 20140120
  3. HALDOL [Suspect]
     Dosage: 275 GTT
     Route: 048
     Dates: start: 20130923, end: 20140101
  4. HALDOL [Suspect]
     Dosage: DOSE INCREASED NOS
     Route: 048
     Dates: start: 20140102, end: 20140104
  5. HALDOL [Suspect]
     Dates: start: 20140120
  6. BACTRIM [Suspect]
     Indication: PROSTATITIS
     Dosage: 2 DF
     Route: 048
     Dates: start: 20131229, end: 20140104
  7. XYLOCAINE [Suspect]
     Dosage: 2 DF
     Route: 066
     Dates: start: 20131219, end: 20140104
  8. REVATIO [Concomitant]
     Dosage: 3 DF
     Route: 048
     Dates: start: 201202, end: 20140104
  9. XATRAL [Concomitant]
     Dosage: 1 DF
     Route: 048
     Dates: end: 20140104
  10. LASILIX [Concomitant]
     Dosage: 1 DF
     Route: 048
     Dates: start: 20130923, end: 20140104
  11. LEPTICUR [Concomitant]
     Dosage: 1 DF
     Route: 048
     Dates: start: 20130923, end: 20140104
  12. RIVOTRIL [Concomitant]
     Dosage: 40 GTT
     Route: 048
     Dates: end: 20140104
  13. SERESTA [Concomitant]
     Dosage: 3.5 DF
     Route: 048
     Dates: start: 20131029, end: 20140104
  14. TEGRETOL [Concomitant]
     Dosage: 2 DF
     Route: 048
     Dates: end: 20140104
  15. CYMBALTA [Concomitant]
     Dates: end: 20140102
  16. DIPIPERON [Concomitant]
     Dates: end: 20140102
  17. CEFTRIAXONE [Concomitant]
     Indication: PROSTATITIS
     Dates: start: 20131224, end: 20131229

REACTIONS (2)
  - Paralysis flaccid [Recovered/Resolved]
  - Oedema [Recovered/Resolved]
